FAERS Safety Report 20953818 (Version 1)
Quarter: 2022Q2

REPORT INFORMATION
  Report Type: Spontaneous
  Country: US (occurrence: US)
  Receive Date: 20220614
  Receipt Date: 20220614
  Transmission Date: 20220721
  Serious: Yes (Hospitalization)
  Sender: FDA-Public Use
  Company Number: US-SUN PHARMACEUTICAL INDUSTRIES LTD-2022R1-337747

PATIENT
  Age: 37 Year
  Sex: Female

DRUGS (1)
  1. LITHIUM [Suspect]
     Active Substance: LITHIUM
     Indication: White blood cell disorder
     Dosage: 300 MILLIGRAM, TID
     Route: 065

REACTIONS (2)
  - Therapy non-responder [Unknown]
  - Treatment noncompliance [Unknown]
